FAERS Safety Report 5425748-1 (Version None)
Quarter: 2007Q3

REPORT INFORMATION
  Report Type: 
  Country: None (occurrence: None)
  Receive Date: 20070731
  Receipt Date: 20070405
  Transmission Date: 20080115
  Serious: No
  Sender: FDA-Public Use
  Company Number: 2007PV031962

PATIENT
  Age: 50 Year
  Sex: Male
  Weight: 112 kg

DRUGS (8)
  1. EXENATIDE(EXENATIDE) PEN,DISPOSABLE [Suspect]
     Indication: TYPE 2 DIABETES MELLITUS
     Dosage: 10 UG, 2/D, SUBCUTANEOUS, 5 UG; 2/D, SUBCUTANEOUS
     Route: 058
     Dates: start: 20070101, end: 20070131
  2. EXENATIDE(EXENATIDE) PEN,DISPOSABLE [Suspect]
     Indication: TYPE 2 DIABETES MELLITUS
     Dosage: 10 UG, 2/D, SUBCUTANEOUS, 5 UG; 2/D, SUBCUTANEOUS
     Route: 058
     Dates: start: 20070201, end: 20070301
  3. EXENATIDE(EXENATIDE) PEN,DISPOSABLE [Suspect]
     Indication: TYPE 2 DIABETES MELLITUS
     Dosage: 10 UG, 2/D, SUBCUTANEOUS, 5 UG; 2/D, SUBCUTANEOUS
     Route: 058
     Dates: start: 20070201
  4. EXENATIDE(EXENATIDE) PEN,DISPOSABLE [Suspect]
     Indication: TYPE 2 DIABETES MELLITUS
     Dosage: 10 UG, 2/D, SUBCUTANEOUS, 5 UG; 2/D, SUBCUTANEOUS
     Route: 058
     Dates: start: 20070301
  5. INSULIN [Concomitant]
  6. ANTARA [Concomitant]
  7. ACTOPLUS TABLET [Concomitant]
  8. MICARDIS [Concomitant]

REACTIONS (6)
  - BLOOD GLUCOSE INCREASED [None]
  - DIZZINESS [None]
  - ERYTHEMA [None]
  - HYPOTENSION [None]
  - NASOPHARYNGITIS [None]
  - NAUSEA [None]
